FAERS Safety Report 4754831-9 (Version None)
Quarter: 2005Q3

REPORT INFORMATION
  Report Type: 
  Country: None (occurrence: None)
  Receive Date: 20050826
  Receipt Date: 20050826
  Transmission Date: 20060218
  Serious: Yes (Other)
  Sender: FDA-Public Use
  Company Number: None

PATIENT
  Age: 75 Year
  Sex: Female
  Weight: 43.9989 kg

DRUGS (6)
  1. ETHAMBUTOL 400 MG MFR. BARR [Suspect]
     Indication: MYCOBACTERIUM AVIUM COMPLEX INFECTION
     Dosage: 2 1/2 TABS (1000) DAILY
     Dates: start: 20041122, end: 20050301
  2. PROPRANOLOL [Concomitant]
  3. DIAZEPAM [Concomitant]
  4. ESTRING [Concomitant]
  5. PREDNISONE TAB [Concomitant]
  6. RANITIDINE HCL [Concomitant]

REACTIONS (3)
  - CHROMATOPSIA [None]
  - VISION BLURRED [None]
  - VISUAL DISTURBANCE [None]
